FAERS Safety Report 9715878 (Version 1)
Quarter: 2013Q4

REPORT INFORMATION
  Report Type: Spontaneous
  Country: US (occurrence: None)
  Receive Date: 20131126
  Receipt Date: 20131126
  Transmission Date: 20140711
  Serious: Yes (Other)
  Sender: FDA-Public Use
  Company Number: None

PATIENT
  Age: 39 Year
  Sex: Female
  Weight: 69.4 kg

DRUGS (1)
  1. SULFAMETHOXAZOLE-TRIMETHOPRIM [Suspect]
     Indication: WOUND INFECTION
     Dosage: 2 PILLS
     Route: 048
     Dates: start: 20131111, end: 20131112

REACTIONS (4)
  - Urticaria [None]
  - No therapeutic response [None]
  - Hypersensitivity [None]
  - Skin exfoliation [None]
